FAERS Safety Report 7359411-7 (Version None)
Quarter: 2011Q1

REPORT INFORMATION
  Report Type: 
  Country: None (occurrence: None)
  Receive Date: 20110317
  Receipt Date: 20091116
  Transmission Date: 20110831
  Serious: No
  Sender: FDA-Public Use
  Company Number: US-PFIZER INC-2009298837

PATIENT
  Age: 46 Year
  Sex: Male

DRUGS (2)
  1. ACCURETIC [Suspect]
  2. NORVASC [Suspect]

REACTIONS (1)
  - HYPERTENSION [None]
